FAERS Safety Report 7011023-0 (Version None)
Quarter: 2010Q3

REPORT INFORMATION
  Report Type: 
  Country: None (occurrence: None)
  Receive Date: 20100923
  Receipt Date: 20081119
  Transmission Date: 20110219
  Serious: Yes (Hospitalization, Other)
  Sender: FDA-Public Use
  Company Number: US-WYE-H05929508

PATIENT
  Sex: Female
  Weight: 71.73 kg

DRUGS (5)
  1. PREMARIN [Suspect]
     Indication: VULVOVAGINAL DRYNESS
     Route: 067
     Dates: start: 20070801, end: 20070901
  2. PREMARIN [Suspect]
     Indication: VULVOVAGINAL BURNING SENSATION
  3. TRAZODONE HCL [Concomitant]
     Dosage: UNKNOWN
     Route: 065
  4. ATIVAN [Concomitant]
     Dosage: UNKNOWN
     Route: 065
  5. LIPITOR [Concomitant]
     Dosage: UNKNOWN
     Route: 065

REACTIONS (1)
  - ENDOMETRIAL CANCER [None]
